FAERS Safety Report 5463090-3 (Version None)
Quarter: 2007Q3

REPORT INFORMATION
  Report Type: 
  Country: None (occurrence: None)
  Receive Date: 20070920
  Receipt Date: 20070912
  Transmission Date: 20080115
  Serious: Yes (Hospitalization)
  Sender: FDA-Public Use
  Company Number: FR-AVENTIS-200712908FR

PATIENT
  Sex: Female

DRUGS (5)
  1. CLAFORAN [Suspect]
     Indication: PROPHYLAXIS
     Route: 042
     Dates: start: 20070518, end: 20070518
  2. GLUCONATE DE CALCIUM 10 % [Suspect]
     Route: 042
     Dates: start: 20070518, end: 20070518
  3. GLUCOSE [Suspect]
     Route: 042
     Dates: start: 20070518, end: 20070518
  4. AMIKLIN                            /00391001/ [Suspect]
     Indication: PROPHYLAXIS
     Route: 042
     Dates: start: 20070518, end: 20070518
  5. CLAMOXYL                           /00249601/ [Suspect]
     Indication: PROPHYLAXIS
     Route: 042
     Dates: start: 20070518, end: 20070518

REACTIONS (1)
  - INJECTION SITE NECROSIS [None]
